FAERS Safety Report 21063619 (Version 1)
Quarter: 2022Q3

REPORT INFORMATION
  Report Type: Spontaneous
  Country: US (occurrence: None)
  Receive Date: 20220708
  Receipt Date: 20220708
  Transmission Date: 20221027
  Serious: Yes (Death)
  Sender: FDA-Public Use
  Company Number: None

PATIENT
  Sex: Male

DRUGS (13)
  1. PROCRIT [Suspect]
     Active Substance: ERYTHROPOIETIN
     Indication: Chronic kidney disease
     Dosage: OTHER QUANTITY : 10000 UNIT/ML;?FREQUENCY : WEEKLY;?
     Route: 058
     Dates: start: 20220520
  2. PROCRIT [Suspect]
     Active Substance: ERYTHROPOIETIN
     Dosage: FREQUENCY : WEEKLY;?
     Route: 058
  3. CREON [Concomitant]
     Active Substance: PANCRELIPASE AMYLASE\PANCRELIPASE LIPASE\PANCRELIPASE PROTEASE
  4. CRESTOR [Concomitant]
     Active Substance: ROSUVASTATIN CALCIUM
  5. D3-1000 [Concomitant]
  6. FLOMAX [Concomitant]
     Active Substance: TAMSULOSIN HYDROCHLORIDE
  7. LASIX [Concomitant]
     Active Substance: FUROSEMIDE
  8. LEVEMIR [Concomitant]
     Active Substance: INSULIN DETEMIR
  9. LOSARTAN POTASSIUM [Concomitant]
     Active Substance: LOSARTAN POTASSIUM
  10. NORVASC [Concomitant]
     Active Substance: AMLODIPINE BESYLATE
  11. NOVOLOG [Concomitant]
     Active Substance: INSULIN ASPART
  12. SODIUM BICAR [Concomitant]
  13. ZOLOFT [Concomitant]
     Active Substance: SERTRALINE HYDROCHLORIDE

REACTIONS (1)
  - Death [None]
